FAERS Safety Report 16672803 (Version 1)
Quarter: 2019Q3

REPORT INFORMATION
  Report Type: Spontaneous
  Country: US (occurrence: US)
  Receive Date: 20190805
  Receipt Date: 20190805
  Transmission Date: 20191004
  Serious: No
  Sender: FDA-Public Use
  Company Number: None

PATIENT
  Age: 50 Year
  Sex: Female
  Weight: 60.75 kg

DRUGS (1)
  1. TRANSDERM SCOP [Suspect]
     Active Substance: SCOPOLAMINE
     Indication: MOTION SICKNESS
     Dosage: ?          QUANTITY:1 PATCH(ES);OTHER FREQUENCY:EVERY 72 HOURS;?
     Route: 062
     Dates: start: 20190720, end: 20190728

REACTIONS (4)
  - Nausea [None]
  - Asthenia [None]
  - Dizziness [None]
  - Vomiting [None]

NARRATIVE: CASE EVENT DATE: 20190730
